FAERS Safety Report 5075251-6 (Version None)
Quarter: 2006Q3

REPORT INFORMATION
  Report Type: 
  Country: None (occurrence: None)
  Receive Date: 20060803
  Receipt Date: 20060803
  Transmission Date: 20061208
  Serious: Yes (Hospitalization)
  Sender: FDA-Public Use
  Company Number: None

PATIENT
  Age: 64 Year
  Sex: Female

DRUGS (1)
  1. CARBOPLATIN [Suspect]
     Dosage: 340 MG

REACTIONS (8)
  - CARDIO-RESPIRATORY ARREST [None]
  - DYSKINESIA [None]
  - FALL [None]
  - HYPOTONIA [None]
  - LOSS OF CONSCIOUSNESS [None]
  - PALLOR [None]
  - RESPIRATORY DISTRESS [None]
  - SWELLING [None]
